FAERS Safety Report 21054309 (Version 2)
Quarter: 2022Q3

REPORT INFORMATION
  Report Type: Report from Study
  Country: JP (occurrence: JP)
  Receive Date: 20220707
  Receipt Date: 20220908
  Transmission Date: 20221027
  Serious: No
  Sender: FDA-Public Use
  Company Number: JP-UCBJ-CD202206222UCBPHAPROD

PATIENT
  Age: 8 Year
  Sex: Female
  Weight: 31.4 kg

DRUGS (8)
  1. LACOSAMIDE [Suspect]
     Active Substance: LACOSAMIDE
     Indication: Partial seizures
     Dosage: 27.5 MILLIGRAM, 2X/DAY (BID)
     Route: 048
     Dates: start: 20211208, end: 20211221
  2. LACOSAMIDE [Suspect]
     Active Substance: LACOSAMIDE
     Dosage: 55 MILLIGRAM, 2X/DAY (BID)
     Route: 048
     Dates: start: 20211222, end: 20220114
  3. LACOSAMIDE [Suspect]
     Active Substance: LACOSAMIDE
     Dosage: 85 MILLIGRAM, 2X/DAY (BID)
     Route: 048
     Dates: start: 20220115, end: 20220208
  4. LACOSAMIDE [Suspect]
     Active Substance: LACOSAMIDE
     Dosage: 115 MILLIGRAM, 2X/DAY (BID)
     Route: 048
     Dates: start: 20220209
  5. LEVETIRACETAM [Concomitant]
     Active Substance: LEVETIRACETAM
     Indication: Partial seizures
     Route: 048
     Dates: start: 20220319, end: 20220416
  6. LEVETIRACETAM [Concomitant]
     Active Substance: LEVETIRACETAM
     Route: 048
     Dates: start: 20220416, end: 20220517
  7. LEVETIRACETAM [Concomitant]
     Active Substance: LEVETIRACETAM
     Route: 048
     Dates: start: 20220517, end: 20220727
  8. LEVETIRACETAM [Concomitant]
     Active Substance: LEVETIRACETAM
     Route: 048
     Dates: start: 20220727

REACTIONS (1)
  - Therapeutic response decreased [Unknown]

NARRATIVE: CASE EVENT DATE: 20220101
